FAERS Safety Report 18171838 (Version 6)
Quarter: 2021Q3

REPORT INFORMATION
  Report Type: Report from Study
  Country: BR (occurrence: BR)
  Receive Date: 20200819
  Receipt Date: 20210719
  Transmission Date: 20211014
  Serious: Yes (Disabling, Other)
  Sender: FDA-Public Use
  Company Number: NVSC2020BR227037

PATIENT
  Sex: Female

DRUGS (8)
  1. COSENTYX [Suspect]
     Active Substance: SECUKINUMAB
     Dosage: 300 MG
     Route: 065
     Dates: start: 20210630
  2. COSENTYX [Suspect]
     Active Substance: SECUKINUMAB
     Dosage: UNK
     Route: 065
     Dates: start: 20200724
  3. COSENTYX [Suspect]
     Active Substance: SECUKINUMAB
     Dosage: UNK
     Route: 065
     Dates: start: 20200710
  4. COSENTYX [Suspect]
     Active Substance: SECUKINUMAB
     Indication: PSORIATIC ARTHROPATHY
     Dosage: 300 MG
     Route: 065
     Dates: start: 20200626
  5. COSENTYX [Suspect]
     Active Substance: SECUKINUMAB
     Dosage: UNK
     Route: 065
     Dates: start: 20200703
  6. COSENTYX [Suspect]
     Active Substance: SECUKINUMAB
     Dosage: UNK
     Route: 065
     Dates: start: 20200824
  7. COSENTYX [Suspect]
     Active Substance: SECUKINUMAB
     Dosage: UNK
     Route: 065
     Dates: start: 20210530
  8. COSENTYX [Suspect]
     Active Substance: SECUKINUMAB
     Dosage: UNK
     Route: 065
     Dates: start: 20200717

REACTIONS (23)
  - Ageusia [Recovered/Resolved]
  - Psoriatic arthropathy [Recovered/Resolved]
  - Gait inability [Recovered/Resolved]
  - Dysarthria [Not Recovered/Not Resolved]
  - Meningitis [Recovered/Resolved]
  - Balance disorder [Recovered/Resolved]
  - Loss of bladder sensation [Recovered/Resolved]
  - Memory impairment [Unknown]
  - Malaise [Recovered/Resolved]
  - Arthralgia [Not Recovered/Not Resolved]
  - Pain [Recovered/Resolved]
  - Asthenia [Recovered/Resolved]
  - Feeling abnormal [Recovered/Resolved]
  - Memory impairment [Recovered/Resolved]
  - Visual impairment [Recovered/Resolved]
  - Arthritis [Recovered/Resolved]
  - Muscular weakness [Recovered/Resolved]
  - Neurogenic bowel [Recovered/Resolved]
  - Eye ulcer [Recovered/Resolved]
  - Pain in extremity [Recovered/Resolved]
  - Anosmia [Recovered/Resolved]
  - Expired product administered [Unknown]
  - Tooth fracture [Unknown]
